FAERS Safety Report 5345987-8 (Version None)
Quarter: 2007Q2

REPORT INFORMATION
  Report Type: 
  Country: None (occurrence: None)
  Receive Date: 20070426
  Receipt Date: 20060508
  Transmission Date: 20071010
  Serious: Yes (Other)
  Sender: FDA-Public Use
  Company Number: US-JNJFOC-20060404983

PATIENT
  Age: 45 Year
  Sex: Male

DRUGS (1)
  1. ULTRAM [Suspect]
     Indication: OSTEOARTHRITIS
     Dosage: 50 MG, ORAL
     Route: 048
     Dates: start: 20020101

REACTIONS (2)
  - DRUG DEPENDENCE [None]
  - DRUG WITHDRAWAL SYNDROME [None]
